FAERS Safety Report 25735307 (Version 1)
Quarter: 2025Q3

REPORT INFORMATION
  Report Type: Spontaneous
  Country: US (occurrence: US)
  Receive Date: 20250828
  Receipt Date: 20250828
  Transmission Date: 20251020
  Serious: No
  Sender: ELI LILLY AND COMPANY
  Company Number: US-ELI_LILLY_AND_COMPANY-US202508024061

PATIENT
  Age: 51 Year

DRUGS (1)
  1. ZEPBOUND [Suspect]
     Active Substance: TIRZEPATIDE
     Indication: Weight control
     Route: 065
     Dates: start: 20250808

REACTIONS (3)
  - Lymphadenopathy [Unknown]
  - Musculoskeletal stiffness [Unknown]
  - Fatigue [Unknown]

NARRATIVE: CASE EVENT DATE: 20250808
